FAERS Safety Report 23600353 (Version 1)
Quarter: 2024Q1

REPORT INFORMATION
  Report Type: Spontaneous
  Country: VN (occurrence: VN)
  Receive Date: 20240306
  Receipt Date: 20240306
  Transmission Date: 20240409
  Serious: Yes (Other)
  Sender: FDA-Public Use
  Company Number: VN-JNJFOC-20240284980

PATIENT
  Sex: Female

DRUGS (1)
  1. SIMPONI [Suspect]
     Active Substance: GOLIMUMAB
     Indication: Ankylosing spondylitis
     Dosage: THERAPY START DATE 15/DEC/2023 TO 23/DEC/2023
     Route: 058
     Dates: start: 202312

REACTIONS (1)
  - Skin discolouration [Not Recovered/Not Resolved]
